FAERS Safety Report 10844885 (Version 1)
Quarter: 2015Q1

REPORT INFORMATION
  Report Type: Spontaneous
  Country: JP (occurrence: JP)
  Receive Date: 20150220
  Receipt Date: 20150220
  Transmission Date: 20150721
  Serious: Yes (Hospitalization)
  Sender: FDA-Public Use
  Company Number: JP-B.I. PHARMACEUTICALS,INC./RIDGEFIELD-2015-BI-04220NB

PATIENT
  Age: 85 Year
  Sex: Female

DRUGS (6)
  1. LOCHOL [Concomitant]
     Active Substance: FLUVASTATIN SODIUM
     Indication: PRODUCT USED FOR UNKNOWN INDICATION
     Route: 048
  2. RYTHMODAN [Concomitant]
     Active Substance: DISOPYRAMIDE
     Indication: PRODUCT USED FOR UNKNOWN INDICATION
     Route: 048
  3. AMLODIPINE [Concomitant]
     Active Substance: AMLODIPINE BESYLATE
     Indication: HYPERTENSION
     Dosage: 5 MG
     Route: 048
  4. PRAZAXA [Suspect]
     Active Substance: DABIGATRAN ETEXILATE MESYLATE
     Indication: ATRIAL FIBRILLATION
     Dosage: 220 MG
     Route: 048
     Dates: start: 20120426, end: 20150116
  5. INAVIR [Suspect]
     Active Substance: LANINAMIVIR
     Indication: INFLUENZA
     Route: 055
  6. DIOVAN [Concomitant]
     Active Substance: VALSARTAN
     Indication: HYPERTENSION
     Dosage: 80 MG
     Route: 048

REACTIONS (4)
  - Prothrombin time prolonged [Recovered/Resolved]
  - Influenza [Unknown]
  - Cystitis haemorrhagic [Recovered/Resolved]
  - Activated partial thromboplastin time prolonged [Recovered/Resolved]

NARRATIVE: CASE EVENT DATE: 20150102
